FAERS Safety Report 4745852-0 (Version None)
Quarter: 2005Q3

REPORT INFORMATION
  Report Type: 
  Country: None (occurrence: None)
  Receive Date: 20050815
  Receipt Date: 20050815
  Transmission Date: 20060218
  Serious: Yes (Hospitalization)
  Sender: FDA-Public Use
  Company Number: None

PATIENT
  Age: 45 Year
  Sex: Male
  Weight: 70 kg

DRUGS (8)
  1. IRINOTECAN (MG/M2), D1 AND D8 OF 21-DAY CYCLE [Suspect]
     Indication: SMALL INTESTINE CARCINOMA METASTATIC
     Dosage: 65       IV
     Route: 042
     Dates: start: 20050601, end: 20050608
  2. CISPLATIN (MG/M2) D1 AND D8 OF 21-DAY CYCLE [Suspect]
     Indication: SMALL INTESTINE CARCINOMA METASTATIC
     Dosage: 25     IV
     Route: 042
     Dates: start: 20050601, end: 20050608
  3. FLUOROURACIL [Suspect]
     Indication: SMALL INTESTINE CARCINOMA METASTATIC
     Dosage: 280        IV
     Route: 042
     Dates: start: 20050602, end: 20050615
  4. COMPAZINE [Concomitant]
  5. DECADRON [Concomitant]
  6. ZOFRAN [Concomitant]
  7. MIRACLE MOUTHWASH [Concomitant]
  8. DILAUDID [Concomitant]

REACTIONS (13)
  - ADENOCARCINOMA [None]
  - DRUG WITHDRAWAL SYNDROME [None]
  - EXOPHTHALMOS [None]
  - EYE SWELLING [None]
  - FATIGUE [None]
  - HEADACHE [None]
  - HYPERCOAGULATION [None]
  - MALIGNANT NEOPLASM PROGRESSION [None]
  - METASTASIS [None]
  - NAUSEA [None]
  - NUCLEAR MAGNETIC RESONANCE IMAGING ABNORMAL [None]
  - PAIN [None]
  - PYREXIA [None]
